FAERS Safety Report 7240413-6 (Version None)
Quarter: 2011Q1

REPORT INFORMATION
  Report Type: 
  Country: None (occurrence: None)
  Receive Date: 20110124
  Receipt Date: 20110117
  Transmission Date: 20110831
  Serious: Yes (Hospitalization)
  Sender: FDA-Public Use
  Company Number: US-JNJFOC-20101202819

PATIENT
  Sex: Male
  Weight: 30.7 kg

DRUGS (3)
  1. SYNTHROID [Concomitant]
     Route: 065
  2. GENOTROPIN [Suspect]
     Indication: BODY HEIGHT BELOW NORMAL
     Route: 058
  3. CONCERTA [Suspect]
     Indication: ATTENTION DEFICIT/HYPERACTIVITY DISORDER
     Route: 048

REACTIONS (1)
  - IDIOPATHIC THROMBOCYTOPENIC PURPURA [None]
